FAERS Safety Report 6200391-5 (Version None)
Quarter: 2009Q2

REPORT INFORMATION
  Report Type: 
  Country: None (occurrence: None)
  Receive Date: 20090522
  Receipt Date: 20070423
  Transmission Date: 20091009
  Serious: No
  Sender: FDA-Public Use
  Company Number: US-ALEXION-A200700002

PATIENT
  Sex: Male
  Weight: 106.12 kg

DRUGS (14)
  1. SOLIRIS [Suspect]
     Indication: PAROXYSMAL NOCTURNAL HAEMOGLOBINURIA
     Dosage: 600 MG, SINGLE
     Route: 042
     Dates: start: 20070420, end: 20070420
  2. BENAZEPRIL HYDROCHLORIDE [Concomitant]
     Indication: HYPERTENSION
     Dosage: 20 MG, QD
     Route: 048
  3. OMEPRAZOLE [Concomitant]
     Indication: GASTROINTESTINAL DISORDER
     Dosage: 20 MG, QD
     Route: 048
  4. MULTIVITAMIN                       /00831701/ [Concomitant]
     Indication: MEDICAL DIET
     Dosage: UNK, QD
     Route: 048
  5. IRON [Concomitant]
     Indication: MEDICAL DIET
     Dosage: UNK, QD
     Route: 048
  6. VITAMIN B12                        /00056201/ [Concomitant]
     Indication: MEDICAL DIET
     Dosage: UNK, QD
     Route: 048
  7. ZINC [Concomitant]
     Indication: MEDICAL DIET
     Dosage: UNK, QD
     Route: 048
  8. ASPIRIN [Concomitant]
     Indication: PROPHYLAXIS
     Dosage: 162 MG, BID
     Route: 048
  9. HYDROCHLOROTHIAZIDE [Concomitant]
     Indication: HYPERTENSION
     Dosage: 12.5 MG, QD
     Route: 048
  10. ASTELIN                            /00884002/ [Concomitant]
     Indication: HYPERSENSITIVITY
     Dosage: UNK, BID
     Route: 045
  11. LOTREL [Concomitant]
     Indication: HYPERTENSION
     Dosage: 5/20, QD
     Route: 048
  12. LORATADINE [Concomitant]
     Indication: HYPERSENSITIVITY
     Route: 048
  13. METHYLPREDNISOLONE [Concomitant]
     Indication: PAROXYSMAL NOCTURNAL HAEMOGLOBINURIA
     Dosage: 4 MG, PRN
     Route: 048
  14. MENINGOCOCCAL VACCINE [Concomitant]
     Indication: PROPHYLAXIS
     Dosage: UNK, SINGLE
     Route: 030
     Dates: start: 20070301, end: 20070301

REACTIONS (4)
  - FATIGUE [None]
  - FEELING JITTERY [None]
  - HEADACHE [None]
  - MUSCULAR WEAKNESS [None]
